FAERS Safety Report 21951611 (Version 1)
Quarter: 2023Q1

REPORT INFORMATION
  Report Type: Spontaneous
  Country: US (occurrence: None)
  Receive Date: 20230203
  Receipt Date: 20230203
  Transmission Date: 20230417
  Serious: No
  Sender: FDA-Public Use
  Company Number: 2023A004080

PATIENT
  Weight: 90.7 kg

DRUGS (1)
  1. BRILINTA [Suspect]
     Active Substance: TICAGRELOR
     Indication: Stent placement
     Route: 048

REACTIONS (6)
  - Oedema peripheral [Unknown]
  - Dyspnoea [Unknown]
  - Pruritus [Unknown]
  - Non-pitting oedema [Unknown]
  - Impaired quality of life [Unknown]
  - Gait disturbance [Unknown]
